FAERS Safety Report 6016427-0 (Version None)
Quarter: 2008Q4

REPORT INFORMATION
  Report Type: 
  Country: None (occurrence: None)
  Receive Date: 20081222
  Receipt Date: 20081218
  Transmission Date: 20090506
  Serious: Yes (Hospitalization, Other)
  Sender: FDA-Public Use
  Company Number: BE-AMGEN-UK319930

PATIENT
  Age: 55 Year
  Sex: Female

DRUGS (1)
  1. VECTIBIX [Suspect]
     Indication: COLORECTAL CANCER
     Route: 065

REACTIONS (3)
  - ANGIOEDEMA [None]
  - BLOOD PRESSURE FLUCTUATION [None]
  - INFUSION RELATED REACTION [None]
